FAERS Safety Report 5606410-9 (Version None)
Quarter: 2008Q1

REPORT INFORMATION
  Report Type: 
  Country: None (occurrence: None)
  Receive Date: 20080129
  Receipt Date: 20071004
  Transmission Date: 20080703
  Serious: No
  Sender: FDA-Public Use
  Company Number: A0685669A

PATIENT
  Age: 36 Year
  Sex: Female

DRUGS (2)
  1. WELLBUTRIN [Suspect]
     Dosage: 100MG PER DAY
     Route: 048
     Dates: start: 20050101
  2. CLARITIN [Concomitant]

REACTIONS (11)
  - CONSTIPATION [None]
  - DRUG INEFFECTIVE [None]
  - EUPHORIC MOOD [None]
  - FATIGUE [None]
  - INSOMNIA [None]
  - OFF LABEL USE [None]
  - RASH [None]
  - STRESS [None]
  - THERAPEUTIC RESPONSE UNEXPECTED [None]
  - TREMOR [None]
  - WEIGHT INCREASED [None]
